FAERS Safety Report 24124739 (Version 1)
Quarter: 2024Q3

REPORT INFORMATION
  Report Type: Report from Study
  Country: US (occurrence: None)
  Receive Date: 20240723
  Receipt Date: 20240723
  Transmission Date: 20241017
  Serious: Yes (Hospitalization)
  Sender: ASTRAZENECA
  Company Number: 2023A014096

PATIENT
  Sex: Female
  Weight: 64 kg

DRUGS (1)
  1. CALQUENCE [Suspect]
     Active Substance: ACALABRUTINIB
     Indication: Chronic lymphocytic leukaemia
     Route: 048

REACTIONS (5)
  - Cardiac failure acute [Unknown]
  - Atrial fibrillation [Unknown]
  - Parainfluenzae virus infection [Unknown]
  - COVID-19 [Unknown]
  - Acute respiratory failure [Unknown]
